FAERS Safety Report 6987034-8 (Version None)
Quarter: 2010Q3

REPORT INFORMATION
  Report Type: 
  Country: None (occurrence: None)
  Receive Date: 20100916
  Receipt Date: 20100910
  Transmission Date: 20110219
  Serious: No
  Sender: FDA-Public Use
  Company Number: US-BIOGENIDEC-2010BI031400

PATIENT
  Age: 43 Year
  Sex: Female

DRUGS (1)
  1. AVONEX [Suspect]
     Indication: MULTIPLE SCLEROSIS
     Route: 030
     Dates: start: 20071001

REACTIONS (5)
  - INSOMNIA [None]
  - JOINT INJURY [None]
  - MUSCULOSKELETAL PAIN [None]
  - ROTATOR CUFF SYNDROME [None]
  - TENDON DISORDER [None]
